FAERS Safety Report 8374145-8 (Version None)
Quarter: 2012Q2

REPORT INFORMATION
  Report Type: 
  Country: None (occurrence: None)
  Receive Date: 20120521
  Receipt Date: 20120518
  Transmission Date: 20120825
  Serious: Yes (Hospitalization, Other)
  Sender: FDA-Public Use
  Company Number: US-GLAXOSMITHKLINE-A0975568A

PATIENT
  Sex: Female
  Weight: 61.4 kg

DRUGS (3)
  1. LAMICTAL [Suspect]
     Indication: BIPOLAR DISORDER
     Dosage: 150MG PER DAY
     Route: 048
  2. SEROQUEL XR [Suspect]
     Dosage: 200MG PER DAY
     Route: 048
  3. KEPPRA [Concomitant]

REACTIONS (2)
  - RASH [None]
  - ACCIDENTAL OVERDOSE [None]
